FAERS Safety Report 25885379 (Version 2)
Quarter: 2025Q4

REPORT INFORMATION
  Report Type: Spontaneous
  Country: US (occurrence: US)
  Receive Date: 20251006
  Receipt Date: 20251009
  Transmission Date: 20260117
  Serious: No
  Sender: SANOFI AVENTIS
  Company Number: US-SANOFI-02672639

PATIENT
  Sex: Female
  Weight: 54.55 kg

DRUGS (39)
  1. DUPIXENT [Suspect]
     Active Substance: DUPILUMAB
     Indication: Idiopathic pulmonary fibrosis
     Dosage: 300 MG, QOW
     Route: 058
  2. DUPIXENT [Suspect]
     Active Substance: DUPILUMAB
     Indication: Chronic obstructive pulmonary disease
  3. DUPIXENT [Suspect]
     Active Substance: DUPILUMAB
     Indication: Dermatitis atopic
  4. OFEV [Concomitant]
     Active Substance: NINTEDANIB
  5. SORE THROAT [Concomitant]
     Active Substance: HOMEOPATHICS
  6. EFFEXOR [Concomitant]
     Active Substance: VENLAFAXINE HYDROCHLORIDE
  7. TYLENOL [Concomitant]
     Active Substance: ACETAMINOPHEN
  8. VITAMIN C [Concomitant]
     Active Substance: ASCORBIC ACID
  9. QVAR REDIHALER [Concomitant]
     Active Substance: BECLOMETHASONE DIPROPIONATE
  10. CLONAZEPAM [Concomitant]
     Active Substance: CLONAZEPAM
  11. BUPRENORPHINE [Concomitant]
     Active Substance: BUPRENORPHINE
  12. AMITIZA [Concomitant]
     Active Substance: LUBIPROSTONE
  13. HYDROCORTISONE [Concomitant]
     Active Substance: HYDROCORTISONE
  14. VITAMIN D3 [Concomitant]
     Active Substance: CHOLECALCIFEROL
  15. MAGNESIUM OXIDE [Concomitant]
     Active Substance: MAGNESIUM OXIDE
  16. MISOPROSTOL [Concomitant]
     Active Substance: MISOPROSTOL
  17. TRAMADOL HCL [Concomitant]
     Active Substance: TRAMADOL HYDROCHLORIDE
  18. SYNTHROID [Concomitant]
     Active Substance: LEVOTHYROXINE SODIUM
  19. LACTULOSE [Concomitant]
     Active Substance: LACTULOSE
  20. PREDNISONE [Concomitant]
     Active Substance: PREDNISONE
  21. DOXYCYCLINE HYCLATE [Concomitant]
     Active Substance: DOXYCYCLINE HYCLATE
  22. BIOFREEZE [Concomitant]
     Active Substance: MENTHOL
  23. PROGESTERONE [Concomitant]
     Active Substance: PROGESTERONE
  24. DILAUDID [Concomitant]
     Active Substance: HYDROMORPHONE HYDROCHLORIDE
  25. SENNA LAXATIVE [Concomitant]
     Active Substance: SENNOSIDES
  26. FOLIC ACID [Concomitant]
     Active Substance: FOLIC ACID
  27. NasaFlo Neti Pot [Concomitant]
  28. OMEPRAZOLE [Concomitant]
     Active Substance: OMEPRAZOLE
  29. COCONUT OIL [Concomitant]
     Active Substance: COCONUT OIL
  30. DULCOLAX STOOL SOFTENER [Concomitant]
     Active Substance: DOCUSATE SODIUM
  31. MELOXICAM [Concomitant]
     Active Substance: MELOXICAM
  32. MUCINEX [Concomitant]
     Active Substance: GUAIFENESIN
  33. OXYGEN [Concomitant]
     Active Substance: OXYGEN
  34. SINGULAIR [Concomitant]
     Active Substance: MONTELUKAST SODIUM
  35. ABILIFY [Concomitant]
     Active Substance: ARIPIPRAZOLE
  36. ESTRADIOL [Concomitant]
     Active Substance: ESTRADIOL
     Dosage: 0.1 MG, QD
  37. LEXAPRO [Concomitant]
     Active Substance: ESCITALOPRAM OXALATE
  38. ALBUTEROL SULFATE [Concomitant]
     Active Substance: ALBUTEROL SULFATE
  39. LOPERAMIDE [Concomitant]
     Active Substance: LOPERAMIDE

REACTIONS (4)
  - Pruritus [Unknown]
  - Injection site pain [Unknown]
  - Product storage error [Unknown]
  - Product use in unapproved indication [Unknown]
